FAERS Safety Report 5157803-8 (Version None)
Quarter: 2006Q4

REPORT INFORMATION
  Report Type: 
  Country: None (occurrence: None)
  Receive Date: 20061121
  Receipt Date: 20061121
  Transmission Date: 20070319
  Serious: Yes (Other)
  Sender: FDA-Public Use
  Company Number: None

PATIENT
  Age: 67 Year
  Sex: Female

DRUGS (7)
  1. CARBOPLATIN [Suspect]
     Indication: OVARIAN CANCER
  2. TAXOL [Suspect]
     Indication: OVARIAN CANCER
  3. DIOVAN HCT [Concomitant]
  4. LIPITOR [Concomitant]
  5. HEPARIN [Concomitant]
  6. NEXIUM [Concomitant]
  7. FENTANYL [Concomitant]

REACTIONS (1)
  - NEUROPATHY PERIPHERAL [None]
